FAERS Safety Report 17857596 (Version 1)
Quarter: 2020Q2

REPORT INFORMATION
  Report Type: Spontaneous
  Country: GB (occurrence: GB)
  Receive Date: 20200604
  Receipt Date: 20200604
  Transmission Date: 20200714
  Serious: Yes (Death, Other)
  Sender: FDA-Public Use
  Company Number: GB-AMGEN-GBRSP2020084108

PATIENT
  Age: 64 Year
  Sex: Female

DRUGS (11)
  1. ALENDRONIC ACID [Concomitant]
     Active Substance: ALENDRONIC ACID
  2. TINZAPARIN [Concomitant]
     Active Substance: TINZAPARIN
  3. COLECALCIFEROL [Concomitant]
     Active Substance: CHOLECALCIFEROL
  4. BISOPROLOL [Concomitant]
     Active Substance: BISOPROLOL
  5. ENBREL [Suspect]
     Active Substance: ETANERCEPT
     Indication: PRODUCT USED FOR UNKNOWN INDICATION
     Dosage: 50 MG, WEEKLY
     Route: 058
     Dates: start: 20161213, end: 201910
  6. LANSOPRAZOLE. [Concomitant]
     Active Substance: LANSOPRAZOLE
  7. METHOTREXATE. [Concomitant]
     Active Substance: METHOTREXATE
  8. LAMOTRIGINE. [Concomitant]
     Active Substance: LAMOTRIGINE
  9. QUININE [Concomitant]
     Active Substance: QUININE
  10. FOLIC ACID. [Concomitant]
     Active Substance: FOLIC ACID
  11. PARACETAMOL [Concomitant]
     Active Substance: ACETAMINOPHEN

REACTIONS (1)
  - Lung cancer metastatic [Fatal]

NARRATIVE: CASE EVENT DATE: 201910
